FAERS Safety Report 13263912 (Version 2)
Quarter: 2017Q2

REPORT INFORMATION
  Report Type: Spontaneous
  Country: US (occurrence: US)
  Receive Date: 20170223
  Receipt Date: 20170406
  Transmission Date: 20170830
  Serious: Yes (Other)
  Sender: FDA-Public Use
  Company Number: US-PFIZER INC-2017079485

PATIENT
  Age: 81 Year
  Sex: Female

DRUGS (1)
  1. XELJANZ XR [Suspect]
     Active Substance: TOFACITINIB CITRATE
     Indication: RHEUMATOID ARTHRITIS
     Dosage: 11 MG, UNK

REACTIONS (8)
  - Dyspnoea [Not Recovered/Not Resolved]
  - Pruritus generalised [Unknown]
  - Choking [Unknown]
  - Diarrhoea [Unknown]
  - Chest discomfort [Not Recovered/Not Resolved]
  - Insomnia [Unknown]
  - Influenza [Unknown]
  - Abdominal pain [Unknown]
